FAERS Safety Report 15881090 (Version 1)
Quarter: 2019Q1

REPORT INFORMATION
  Report Type: Spontaneous
  Country: US (occurrence: US)
  Receive Date: 20190128
  Receipt Date: 20190128
  Transmission Date: 20190417
  Serious: Yes (Death, Hospitalization, Other)
  Sender: FDA-Public Use
  Company Number: US-PFIZER INC-2018534204

PATIENT
  Age: 66 Year
  Sex: Male

DRUGS (25)
  1. METOPROLOL. [Suspect]
     Active Substance: METOPROLOL
     Indication: CARDIAC FAILURE CONGESTIVE
     Dosage: 200 MG, DAILY
     Route: 048
     Dates: start: 20180831, end: 20181026
  2. TYLENOL WITH CODEINE [Concomitant]
     Active Substance: ACETAMINOPHEN\CODEINE PHOSPHATE
     Dosage: 1 DF, 3X/DAY
     Route: 048
     Dates: start: 20181025
  3. PROVENTIL [Concomitant]
     Active Substance: ALBUTEROL
     Dosage: 1 DF, PRN (4 TIMES DAILY AS NEEDED)
     Route: 065
     Dates: start: 20180905
  4. ZANAFLEX [Concomitant]
     Active Substance: TIZANIDINE HYDROCHLORIDE
     Dosage: 2 MG, AS NEEDED (EVERY 6 HOURS AS NEEDED)
     Route: 048
     Dates: start: 20180823
  5. FERROUS SULFATE. [Concomitant]
     Active Substance: FERROUS SULFATE
     Dosage: 325 MG, BID
     Route: 048
     Dates: start: 20180725
  6. METOPROLOL. [Suspect]
     Active Substance: METOPROLOL
     Indication: ATRIAL FIBRILLATION
     Dosage: 200 MG, DAILY
     Route: 048
     Dates: start: 20161222
  7. CENTRUM SILVER /02363801/ [Concomitant]
     Active Substance: MINERALS\VITAMINS
     Dosage: 1 DF, DAILY
     Route: 048
     Dates: start: 20180623
  8. DESYREL [Concomitant]
     Active Substance: TRAZODONE HYDROCHLORIDE
     Dosage: 100 MG, UNK
     Route: 065
     Dates: start: 20170227
  9. ELIQUIS [Suspect]
     Active Substance: APIXABAN
     Dosage: 5 MG, BID
     Route: 048
     Dates: start: 20181004
  10. DELTASONE [Concomitant]
     Active Substance: PREDNISONE
     Dosage: 3 DF, ALTERNATE DAY (3 TABLETS BY MOUTH EVERY OTHER DAY); 30 MG, UNK
     Route: 048
     Dates: start: 20181011
  11. TOPROL XL [Concomitant]
     Active Substance: METOPROLOL SUCCINATE
     Dosage: 1 DF, DAILY (1 TABLET BY MOUTH DAILY); 200 MG, UNK
     Route: 048
     Dates: start: 20181026
  12. REVATIO [Concomitant]
     Active Substance: SILDENAFIL CITRATE
     Dosage: 20 MG, PRN
     Route: 048
     Dates: start: 20180927
  13. DEMADEX [Concomitant]
     Active Substance: TORSEMIDE
     Dosage: 4 DF, 1X/DAY (4 TABLETS BY MOUTH EVERY MORNING); 20 MG, UNK
     Route: 048
     Dates: start: 20180713
  14. GLUCOTROL [Concomitant]
     Active Substance: GLIPIZIDE
     Dosage: 5 MG, BID
     Route: 048
     Dates: start: 20180713
  15. ELIQUIS [Suspect]
     Active Substance: APIXABAN
     Indication: CEREBROVASCULAR ACCIDENT PROPHYLAXIS
     Dosage: 5 MG, BID
     Route: 048
     Dates: start: 20170928
  16. CYMBALTA [Concomitant]
     Active Substance: DULOXETINE HYDROCHLORIDE
     Dosage: 3 DF, DAILY (3 CAPSULES BY MOTH DAILY); 30 MG, UNK
     Route: 048
     Dates: start: 20180905
  17. FLOMAX [Concomitant]
     Active Substance: TAMSULOSIN HYDROCHLORIDE
     Dosage: 1 DF, UNK (1 CAPSULE BY MOUTH EVERY EVENING); 0.4 MG, UNK
     Route: 048
     Dates: start: 20180905
  18. PRILOSEC [Concomitant]
     Active Substance: OMEPRAZOLE MAGNESIUM
     Dosage: 1 DF, DAILY (1 CAPSULE DAILY); 20 MG, UNK
     Route: 048
     Dates: start: 20081114
  19. GABAPENTIN ^PCD^ [Concomitant]
     Active Substance: GABAPENTIN
     Dosage: 800 MG, UNK (MAXIMUM DAILY DOSE OF 6 PER DAY)
     Route: 048
     Dates: start: 20180924
  20. COMBIVENT RESPIMAT [Concomitant]
     Active Substance: ALBUTEROL SULFATE\IPRATROPIUM BROMIDE
     Dosage: 1 DF, 4X/DAY
     Route: 065
     Dates: start: 20180614
  21. LANTUS XR [Concomitant]
     Active Substance: INSULIN GLARGINE
     Dosage: 1 DF, UNK
     Route: 058
     Dates: start: 20180905
  22. LIPITOR [Concomitant]
     Active Substance: ATORVASTATIN CALCIUM
     Dosage: 1 DF, DAILY (1 TABLET BY MOUTH DAILY); 40 MG, UNK
     Route: 048
     Dates: start: 20180905
  23. VERAPAMIL HCL [Suspect]
     Active Substance: VERAPAMIL HYDROCHLORIDE
     Indication: ATRIAL FIBRILLATION
     Dosage: 360 MG, DAILY
     Route: 065
     Dates: start: 20161129
  24. ATROVENT [Concomitant]
     Active Substance: IPRATROPIUM BROMIDE
     Dosage: UNK
     Route: 055
     Dates: start: 20181019
  25. PROAMATINE [Concomitant]
     Active Substance: MIDODRINE HYDROCHLORIDE
     Dosage: 2.5 MG, BID
     Route: 048
     Dates: start: 20180905

REACTIONS (5)
  - Empyema [Recovered/Resolved]
  - Ventricular fibrillation [Fatal]
  - Cardiac arrest [Fatal]
  - Pneumonia [Recovered/Resolved]
  - Contusion [Unknown]

NARRATIVE: CASE EVENT DATE: 20180615
